FAERS Safety Report 8046659-1 (Version None)
Quarter: 2012Q1

REPORT INFORMATION
  Report Type: 
  Country: None (occurrence: None)
  Receive Date: 20120114
  Receipt Date: 20120106
  Transmission Date: 20120608
  Serious: Yes (Other)
  Sender: FDA-Public Use
  Company Number: US-BAYER-2012-002908

PATIENT
  Age: 80 Year
  Sex: Female
  Weight: 56.689 kg

DRUGS (8)
  1. ALEVE (CAPLET) [Suspect]
     Indication: ARTHRITIS
     Dosage: 1 DF, QD
     Route: 048
     Dates: start: 20110701, end: 20110701
  2. DIOVAN [Concomitant]
  3. IRON SUPPLEMENT [Concomitant]
  4. VYTORIN [Concomitant]
  5. GLUCOSAMINE [GLUCOSAMINE] [Concomitant]
  6. VITAMIN D [Concomitant]
  7. VITAMIN B-12 [Concomitant]
  8. ARIMIDEX [Concomitant]

REACTIONS (3)
  - FOREIGN BODY [None]
  - DYSPEPSIA [None]
  - CHOKING [None]
